FAERS Safety Report 22608709 (Version 1)
Quarter: 2023Q2

REPORT INFORMATION
  Report Type: Spontaneous
  Country: US (occurrence: US)
  Receive Date: 20230616
  Receipt Date: 20230616
  Transmission Date: 20230721
  Serious: No
  Sender: FDA-Public Use
  Company Number: US-ELI_LILLY_AND_COMPANY-US202306009627

PATIENT
  Age: 52 Year
  Sex: Female

DRUGS (1)
  1. OLUMIANT [Suspect]
     Active Substance: BARICITINIB
     Indication: Alopecia
     Dosage: UNK UNK, UNKNOWN
     Route: 065

REACTIONS (3)
  - Acne [Unknown]
  - Weight increased [Unknown]
  - Blood cholesterol increased [Unknown]
